FAERS Safety Report 4562664-1 (Version None)
Quarter: 2005Q1

REPORT INFORMATION
  Report Type: 
  Country: None (occurrence: None)
  Receive Date: 20050124
  Receipt Date: 20050111
  Transmission Date: 20050727
  Serious: Yes (Hospitalization, Other)
  Sender: FDA-Public Use
  Company Number: 2004119521

PATIENT
  Age: 66 Year
  Sex: Male

DRUGS (5)
  1. UNASYN [Suspect]
     Indication: PNEUMONIA
     Dosage: 6 GRAM (3 GRAM, 2 IN 1 D), INTRAVENOUS
     Route: 042
     Dates: start: 20041210, end: 20041216
  2. CLARITHROMYCIN [Suspect]
     Indication: PNEUMONIA
     Dosage: 400 MG (200 MG, 2 IN 1 D), ORAL
     Route: 048
     Dates: start: 20041210, end: 20041216
  3. TAMSULOSIN HYDROCHLORIDE (TAMSULOSIN HYDROCHLORIDE) [Concomitant]
  4. CEFMETAZOLE SODIUM (CEFMETAZOLE SODIUM) [Concomitant]
  5. CEFAZOLIN [Concomitant]

REACTIONS (9)
  - BASOPHIL PERCENTAGE INCREASED [None]
  - EOSINOPHIL PERCENTAGE INCREASED [None]
  - HAEMATOCRIT DECREASED [None]
  - HAEMOGLOBIN DECREASED [None]
  - LYMPHOCYTE PERCENTAGE INCREASED [None]
  - MONOCYTE PERCENTAGE INCREASED [None]
  - NEUTROPHIL COUNT DECREASED [None]
  - RED BLOOD CELL COUNT DECREASED [None]
  - WHITE BLOOD CELL COUNT DECREASED [None]
